FAERS Safety Report 9351572 (Version 1)
Quarter: 2013Q2

REPORT INFORMATION
  Report Type: Report from Study
  Country: DE (occurrence: DE)
  Receive Date: 20130617
  Receipt Date: 20130617
  Transmission Date: 20140414
  Serious: No
  Sender: FDA-Public Use
  Company Number: PHHY2012DE119532

PATIENT
  Sex: Female

DRUGS (12)
  1. AMN107 [Suspect]
     Indication: CHRONIC MYELOID LEUKAEMIA
     Dosage: 300 MG, PER DAY
     Route: 048
     Dates: start: 20120327, end: 20120417
  2. AMN107 [Suspect]
     Dosage: 300 MG, PER DAY
     Route: 048
     Dates: start: 20120427, end: 20120504
  3. AMN107 [Suspect]
     Dosage: 600 MG, PER DAY
     Route: 048
  4. TOREM [Concomitant]
     Dosage: 5 MG, UNK
  5. OXYGESIC AKUT [Concomitant]
     Dosage: 5 MG, UNK
  6. ATACAND [Concomitant]
     Dosage: 16 MG, UNK
     Dates: start: 20120406
  7. NOVALGIN [Concomitant]
     Dosage: UNK UKN, UNK
  8. AMITRIPTYLIN [Concomitant]
     Dosage: UNK UKN, UNK
  9. KALINOR [Concomitant]
     Dosage: UNK UKN, UNK
  10. SYREA [Concomitant]
     Dosage: 500 MG, UNK
     Dates: start: 20120302, end: 20120720
  11. VIGANTOLETTEN [Concomitant]
     Dosage: UNK UKN, UNK
  12. OXYCODON [Concomitant]
     Dosage: UNK UKN, UNK
     Dates: start: 20121002

REACTIONS (3)
  - Alopecia [Recovered/Resolved]
  - Decreased appetite [Recovered/Resolved]
  - Dyspnoea [Not Recovered/Not Resolved]
